FAERS Safety Report 25487869 (Version 2)
Quarter: 2025Q3

REPORT INFORMATION
  Report Type: Spontaneous
  Country: US (occurrence: US)
  Receive Date: 20250627
  Receipt Date: 20250815
  Transmission Date: 20251020
  Serious: Yes (Disabling, Other)
  Sender: REGENERON
  Company Number: US-REGENERON PHARMACEUTICALS, INC.-2025-102109

PATIENT
  Sex: Female

DRUGS (14)
  1. EYLEA HD [Suspect]
     Active Substance: AFLIBERCEPT
     Indication: Neovascular age-related macular degeneration
     Route: 031
     Dates: start: 20250611, end: 20250611
  2. EYLEA HD [Suspect]
     Active Substance: AFLIBERCEPT
     Indication: Choroidal neovascularisation
  3. LIDOCAINE [Concomitant]
     Active Substance: LIDOCAINE
     Indication: Product used for unknown indication
     Route: 057
     Dates: start: 20250611
  4. LIDOCAINE [Concomitant]
     Active Substance: LIDOCAINE
     Route: 057
     Dates: start: 20250623
  5. COENZYME Q10 [Concomitant]
     Active Substance: DIETARY SUPPLEMENT\UBIDECARENONE
     Indication: Product used for unknown indication
  6. FISH OIL [Concomitant]
     Active Substance: FISH OIL
     Indication: Product used for unknown indication
  7. MINERALS\VITAMINS [Concomitant]
     Active Substance: MINERALS\VITAMINS
     Indication: Product used for unknown indication
     Dates: start: 20150729
  8. HERBALS\TURMERIC [Concomitant]
     Active Substance: HERBALS\TURMERIC
     Indication: Product used for unknown indication
  9. TROPICAMIDE [Concomitant]
     Active Substance: TROPICAMIDE
     Indication: Product used for unknown indication
     Route: 031
     Dates: start: 20250611
  10. TROPICAMIDE [Concomitant]
     Active Substance: TROPICAMIDE
     Route: 031
     Dates: start: 20250623
  11. TROPICAMIDE [Concomitant]
     Active Substance: TROPICAMIDE
     Route: 031
     Dates: start: 20250730
  12. PHENYLEPHRINE [Concomitant]
     Active Substance: PHENYLEPHRINE
     Indication: Product used for unknown indication
     Route: 031
     Dates: start: 20250611
  13. PHENYLEPHRINE [Concomitant]
     Active Substance: PHENYLEPHRINE
     Route: 031
     Dates: start: 20250623
  14. PHENYLEPHRINE [Concomitant]
     Active Substance: PHENYLEPHRINE
     Route: 031
     Dates: start: 20250730

REACTIONS (2)
  - Blindness unilateral [Unknown]
  - Non-infectious endophthalmitis [Recovering/Resolving]

NARRATIVE: CASE EVENT DATE: 20250601
